FAERS Safety Report 16007838 (Version 2)
Quarter: 2019Q1

REPORT INFORMATION
  Report Type: Report from Study
  Country: DE (occurrence: DE)
  Receive Date: 20190226
  Receipt Date: 20190319
  Transmission Date: 20190418
  Serious: No
  Sender: FDA-Public Use
  Company Number: PHHO2019DE001413

PATIENT
  Age: 32 Year
  Sex: Male
  Weight: 85 kg

DRUGS (6)
  1. OMEP [Concomitant]
     Active Substance: OMEPRAZOLE
     Indication: PROPHYLAXIS
     Dosage: 40 MG, QD
     Route: 048
     Dates: start: 20161103
  2. BLINDED NO TREATMENT RECEIVED [Suspect]
     Active Substance: INVESTIGATIONAL PRODUCT
     Indication: AXIAL SPONDYLOARTHRITIS
     Dosage: CODE NOT BROKEN
     Route: 058
     Dates: start: 20171214
  3. DEKRISTOL [Concomitant]
     Active Substance: CHOLECALCIFEROL
     Indication: HYPOVITAMINOSIS
     Dosage: 20000 IE, WEEKLY
     Route: 048
     Dates: start: 20170104
  4. BLINDED PLACEBO [Suspect]
     Active Substance: INVESTIGATIONAL PRODUCT
     Indication: AXIAL SPONDYLOARTHRITIS
     Dosage: CODE NOT BROKEN
     Route: 058
     Dates: start: 20171214
  5. NAPROXEN. [Concomitant]
     Active Substance: NAPROXEN
     Indication: PAIN PROPHYLAXIS
     Dosage: 500 MG, QD
     Route: 048
     Dates: start: 20161103
  6. BLINDED AIN457 [Suspect]
     Active Substance: SECUKINUMAB
     Indication: AXIAL SPONDYLOARTHRITIS
     Dosage: CODE NOT BROKEN
     Route: 058
     Dates: start: 20171214

REACTIONS (2)
  - Physical disability [Recovered/Resolved]
  - Fatigue [Recovered/Resolved]

NARRATIVE: CASE EVENT DATE: 20181219
